FAERS Safety Report 14298724 (Version 1)
Quarter: 2017Q4

REPORT INFORMATION
  Report Type: Spontaneous
  Country: US (occurrence: US)
  Receive Date: 20171216
  Receipt Date: 20171216
  Transmission Date: 20180321
  Serious: Yes (Death)
  Sender: FDA-Public Use
  Company Number: None

PATIENT
  Age: 85 Year
  Sex: Male

DRUGS (1)
  1. XELODA [Suspect]
     Active Substance: CAPECITABINE
     Indication: COLON CANCER
     Dosage: 1000 MG (2 TABLETS) Q MORNING+ Q EVENING ORAL
     Route: 048
     Dates: start: 20161213, end: 20170426

REACTIONS (1)
  - Death [None]

NARRATIVE: CASE EVENT DATE: 20170715
